FAERS Safety Report 7318780-4 (Version None)
Quarter: 2011Q1

REPORT INFORMATION
  Report Type: 
  Country: None (occurrence: None)
  Receive Date: 20110228
  Receipt Date: 20100701
  Transmission Date: 20110831
  Serious: No
  Sender: FDA-Public Use
  Company Number: A0860001A

PATIENT
  Age: 67 Year
  Sex: Female

DRUGS (3)
  1. THYROID MEDICATION [Concomitant]
  2. IMITREX [Suspect]
     Indication: MIGRAINE
     Dosage: 6MG AS REQUIRED
     Route: 058
     Dates: start: 19920101
  3. PROVENTIL [Concomitant]

REACTIONS (3)
  - INJECTION SITE PAIN [None]
  - DRUG INEFFECTIVE [None]
  - PRODUCT QUALITY ISSUE [None]
